FAERS Safety Report 8438365-6 (Version None)
Quarter: 2012Q2

REPORT INFORMATION
  Report Type: 
  Country: None (occurrence: None)
  Receive Date: 20120614
  Receipt Date: 20120613
  Transmission Date: 20120825
  Serious: Yes (Death)
  Sender: FDA-Public Use
  Company Number: TH-MERCK-1206USA00159

PATIENT
  Age: 51 Year
  Sex: Female

DRUGS (11)
  1. TRANXENE [Concomitant]
     Route: 065
  2. SIMVASTATIN [Concomitant]
     Route: 048
  3. METFORMIN [Concomitant]
     Route: 065
  4. FBC [Concomitant]
     Route: 065
  5. ASPIRIN [Concomitant]
     Route: 065
  6. JANUVIA [Suspect]
     Indication: DIABETES MELLITUS
     Route: 048
     Dates: end: 20110801
  7. XANAX [Concomitant]
     Route: 065
  8. DIAMICRON MR [Concomitant]
     Route: 065
  9. CLOPIDOGREL [Concomitant]
     Route: 065
  10. CONCOR [Concomitant]
     Route: 065
  11. NORGESIC (ACETAMINOPHEN (+) ORPHENADRINE CITRATE) [Concomitant]
     Route: 065

REACTIONS (1)
  - ACUTE MYOCARDIAL INFARCTION [None]
